FAERS Safety Report 16760360 (Version 1)
Quarter: 2019Q3

REPORT INFORMATION
  Report Type: Spontaneous
  Country: US (occurrence: US)
  Receive Date: 20190830
  Receipt Date: 20190830
  Transmission Date: 20191005
  Serious: No
  Sender: FDA-Public Use
  Company Number: US-BAYER-2019-158162

PATIENT
  Age: 20 Year
  Sex: Female

DRUGS (1)
  1. SKYLA [Suspect]
     Active Substance: LEVONORGESTREL
     Indication: MENSTRUATION IRREGULAR
     Dosage: 14 MCG/24HR, CONT
     Route: 015
     Dates: start: 20180419, end: 20180614

REACTIONS (4)
  - Off label use [None]
  - Abdominal pain lower [None]
  - Product use in unapproved indication [None]
  - Medical device pain [None]

NARRATIVE: CASE EVENT DATE: 201804
